FAERS Safety Report 17617860 (Version 2)
Quarter: 2020Q2

REPORT INFORMATION
  Report Type: Report from Study
  Country: None (occurrence: US)
  Receive Date: 20200402
  Receipt Date: 20200521
  Transmission Date: 20200713
  Serious: Yes (Hospitalization, Other)
  Sender: FDA-Public Use
  Company Number: US-ABBVIE-20K-163-3347120-00

PATIENT
  Age: 33 Year
  Sex: Female

DRUGS (1)
  1. HUMIRA [Suspect]
     Active Substance: ADALIMUMAB
     Indication: EXPOSURE VIA BODY FLUID
     Dosage: CITRATE FREE
     Route: 050

REACTIONS (6)
  - Pre-eclampsia [Not Recovered/Not Resolved]
  - Live birth [Unknown]
  - Hypertension [Recovered/Resolved]
  - Paternal exposure during pregnancy [Unknown]
  - Maternal exposure during pregnancy [Unknown]
  - Hypertension [Recovering/Resolving]

NARRATIVE: CASE EVENT DATE: 202002
